FAERS Safety Report 25930787 (Version 1)
Quarter: 2025Q4

REPORT INFORMATION
  Report Type: Report from Study
  Country: US (occurrence: US)
  Receive Date: 20251016
  Receipt Date: 20251016
  Transmission Date: 20260118
  Serious: Yes (Other)
  Sender: ABBVIE
  Company Number: US-ABBVIE-6476149

PATIENT
  Age: 54 Year
  Sex: Male

DRUGS (4)
  1. SKYRIZI [Suspect]
     Active Substance: RISANKIZUMAB-RZAA
     Indication: Psoriasis
     Route: 058
     Dates: start: 20250118
  2. SKYRIZI [Suspect]
     Active Substance: RISANKIZUMAB-RZAA
     Dosage: TIME INTERVAL: TOTAL: WEEK 0?STRENGTH : 150MG/ML
     Route: 058
     Dates: start: 202509, end: 202509
  3. SKYRIZI [Suspect]
     Active Substance: RISANKIZUMAB-RZAA
     Dosage: TIME INTERVAL: TOTAL: WEEK 4?STRENGTH : 150MG/ML
     Route: 058
     Dates: start: 2025, end: 2025
  4. SKYRIZI [Suspect]
     Active Substance: RISANKIZUMAB-RZAA
     Dosage: EVERY 12 WEEKS?STRENGTH : 150MG/ML
     Route: 058
     Dates: start: 2025

REACTIONS (3)
  - Aortic valve stenosis [Unknown]
  - Hypoaesthesia [Unknown]
  - Peripheral arterial occlusive disease [Unknown]

NARRATIVE: CASE EVENT DATE: 20250101
